FAERS Safety Report 8056759-8 (Version None)
Quarter: 2012Q1

REPORT INFORMATION
  Report Type: 
  Country: None (occurrence: None)
  Receive Date: 20120119
  Receipt Date: 20120117
  Transmission Date: 20120608
  Serious: Yes (Hospitalization)
  Sender: FDA-Public Use
  Company Number: US-GLAXOSMITHKLINE-A0914649A

PATIENT
  Age: 65 Year
  Sex: Male
  Weight: 98.2 kg

DRUGS (1)
  1. AVANDIA [Suspect]
     Indication: DIABETES MELLITUS
     Dosage: 8MG PER DAY
     Route: 048
     Dates: start: 20010701, end: 20031201

REACTIONS (11)
  - CARDIAC FAILURE CONGESTIVE [None]
  - SYNCOPE [None]
  - EXTRASYSTOLES [None]
  - AZOTAEMIA [None]
  - WEIGHT INCREASED [None]
  - PULMONARY HYPERTENSION [None]
  - ATRIOVENTRICULAR BLOCK COMPLETE [None]
  - HYPERKALAEMIA [None]
  - CAROTID ARTERY ANEURYSM [None]
  - ATRIAL FIBRILLATION [None]
  - LEFT VENTRICULAR HYPERTROPHY [None]
